FAERS Safety Report 4339180-5 (Version None)
Quarter: 2004Q2

REPORT INFORMATION
  Report Type: 
  Country: None (occurrence: None)
  Receive Date: 20040414
  Receipt Date: 20040414
  Transmission Date: 20050107
  Serious: Yes (Other)
  Sender: FDA-Public Use
  Company Number: None

PATIENT
  Age: 44 Year
  Sex: Male
  Weight: 63.5036 kg

DRUGS (2)
  1. ARTICAINE 4% W/ EPI 1:100,000 [Suspect]
     Indication: LOCAL ANAESTHESIA
     Dosage: 1.8 ML UPPER (L) PSA INJECTION
     Dates: start: 20031117
  2. SEPTOCAINE [Suspect]
     Dosage: 1.0 ML UPPER ANTERIOR INJ
     Dates: start: 20031117

REACTIONS (4)
  - ANXIETY [None]
  - CONFUSIONAL STATE [None]
  - HYPOAESTHESIA [None]
  - INJECTION SITE REACTION [None]
